FAERS Safety Report 14502702 (Version 6)
Quarter: 2021Q2

REPORT INFORMATION
  Report Type: Report from Study
  Country: US (occurrence: US)
  Receive Date: 20180208
  Receipt Date: 20210611
  Transmission Date: 20210716
  Serious: Yes (Other)
  Sender: FDA-Public Use
  Company Number: US-ARIAD PHARMACEUTICALS, INC-2017US008872

PATIENT
  Sex: Female
  Weight: 59 kg

DRUGS (5)
  1. PONATINIB [Suspect]
     Active Substance: PONATINIB
     Dosage: 15 MILLIGRAM, QD
     Route: 048
     Dates: start: 2013, end: 20210302
  2. PONATINIB [Suspect]
     Active Substance: PONATINIB
     Indication: MYELOID LEUKAEMIA
     Dosage: 30 MILLIGRAM
     Route: 065
     Dates: start: 20131018
  3. LOSARTAN. [Concomitant]
     Active Substance: LOSARTAN
     Dosage: 50 MILLIGRAM
     Route: 065
  4. PONATINIB [Suspect]
     Active Substance: PONATINIB
     Indication: CHRONIC MYELOID LEUKAEMIA
     Dosage: 45 MILLIGRAM
     Route: 065
     Dates: start: 20130627
  5. LEVOTHYROXINE. [Concomitant]
     Active Substance: LEVOTHYROXINE
     Dosage: 15 MILLIGRAM
     Route: 065

REACTIONS (11)
  - Skin disorder [Recovered/Resolved]
  - Philadelphia chromosome positive [Unknown]
  - Pulmonary granuloma [Unknown]
  - Carpal tunnel syndrome [Unknown]
  - Conjunctivitis [Unknown]
  - Neuropathy peripheral [Unknown]
  - Eye irritation [Recovered/Resolved]
  - Clubbing [Unknown]
  - Haematuria [Unknown]
  - Gallbladder neoplasm [Unknown]
  - Blood pressure increased [Unknown]
